FAERS Safety Report 7304199 (Version 3)
Quarter: 2014Q1

REPORT INFORMATION
  Report Type: Spontaneous
  Country: US (occurrence: US)
  Receive Date: 20100125
  Receipt Date: 20140214
  Transmission Date: 20141002
  Serious: Yes (Hospitalization)
  Sender: FDA-Public Use
  Company Number: 2009BI030310

PATIENT
  Age: 51 Year
  Sex: Female
  Weight: 93 kg

DRUGS (2)
  1. TYSABRI [Suspect]
     Indication: MULTIPLE SCLEROSIS
     Route: 042
     Dates: start: 20070802
  2. ASPIRIN [Concomitant]

REACTIONS (20)
  - Ovarian cyst [Recovered/Resolved]
  - Urinary tract infection [Recovered/Resolved]
  - Induration [Not Recovered/Not Resolved]
  - Pain in extremity [Recovered/Resolved]
  - Dyspnoea [Recovered/Resolved]
  - Dermal cyst [Recovered/Resolved]
  - Narcolepsy [Not Recovered/Not Resolved]
  - Memory impairment [Recovered/Resolved]
  - Nausea [Unknown]
  - Pain in jaw [Recovered/Resolved]
  - Urinary retention [Not Recovered/Not Resolved]
  - Gastrointestinal disorder [Not Recovered/Not Resolved]
  - Laryngeal discomfort [Not Recovered/Not Resolved]
  - Abdominal pain upper [Not Recovered/Not Resolved]
  - Investigation abnormal [Not Recovered/Not Resolved]
  - Groin pain [Not Recovered/Not Resolved]
  - Breast discharge [Not Recovered/Not Resolved]
  - Breast pain [Not Recovered/Not Resolved]
  - Cyst [Recovered/Resolved]
  - Throat tightness [Recovered/Resolved]
